FAERS Safety Report 10712190 (Version 1)
Quarter: 2015Q1

REPORT INFORMATION
  Report Type: Spontaneous
  Country: US (occurrence: US)
  Receive Date: 20150114
  Receipt Date: 20150114
  Transmission Date: 20150721
  Serious: No
  Sender: FDA-Public Use
  Company Number: US-ASTRAZENECA-2014SE81654

PATIENT
  Age: 68 Year
  Sex: Female
  Weight: 41.7 kg

DRUGS (9)
  1. SYMBICORT [Suspect]
     Active Substance: BUDESONIDE\FORMOTEROL FUMARATE DIHYDRATE
     Indication: CHRONIC OBSTRUCTIVE PULMONARY DISEASE
     Dosage: 320 UG, TWO TIMES A DAY
     Route: 055
     Dates: start: 2014
  2. THEO 24 ER [Concomitant]
     Route: 048
     Dates: start: 2012
  3. SOMA [Concomitant]
     Active Substance: CARISOPRODOL
     Indication: MUSCLE SPASMS
     Route: 048
  4. LORTAB [Concomitant]
     Active Substance: ACETAMINOPHEN\HYDROCODONE BITARTRATE
     Indication: MUSCLE SPASMS
     Dosage: AS REQUIRED
     Route: 048
  5. SPIRIVA [Concomitant]
     Active Substance: TIOTROPIUM BROMIDE MONOHYDRATE
     Indication: CHRONIC OBSTRUCTIVE PULMONARY DISEASE
  6. PLAVIX [Concomitant]
     Active Substance: CLOPIDOGREL BISULFATE
     Indication: ARTERIAL OCCLUSIVE DISEASE
     Route: 048
     Dates: start: 2008
  7. LORAZAPAM [Concomitant]
     Active Substance: LORAZEPAM
     Indication: ANXIETY
     Route: 048
  8. VENTOLIN [Concomitant]
     Active Substance: ALBUTEROL SULFATE
     Indication: CHRONIC OBSTRUCTIVE PULMONARY DISEASE
     Route: 055
  9. FOSAMAX [Concomitant]
     Active Substance: ALENDRONATE SODIUM

REACTIONS (5)
  - Dyspnoea [Not Recovered/Not Resolved]
  - Oropharyngeal pain [Not Recovered/Not Resolved]
  - Malaise [Not Recovered/Not Resolved]
  - Dyspnoea [Unknown]
  - Intentional product misuse [Unknown]

NARRATIVE: CASE EVENT DATE: 2014
